FAERS Safety Report 21860503 (Version 1)
Quarter: 2023Q1

REPORT INFORMATION
  Report Type: Spontaneous
  Country: US (occurrence: None)
  Receive Date: 20230113
  Receipt Date: 20230113
  Transmission Date: 20230418
  Serious: Yes (Disabling)
  Sender: FDA-Public Use
  Company Number: None

PATIENT
  Age: 70 Year
  Sex: Female
  Weight: 51.75 kg

DRUGS (4)
  1. SYNTHROID [Suspect]
     Active Substance: LEVOTHYROXINE SODIUM
     Dosage: OTHER QUANTITY : 1 TABLET(S);?
     Route: 048
  2. SYNTHROID [Suspect]
     Active Substance: LEVOTHYROXINE SODIUM
     Indication: Hyperthyroidism
     Dosage: OTHER QUANTITY : 1 TABLET(S);?FREQUENCY : EVERY DAY BEFORE NOON;?
     Route: 048
  3. SINGULAIR [Concomitant]
     Active Substance: MONTELUKAST SODIUM
  4. ALLEGRA [Concomitant]
     Active Substance: FEXOFENADINE HYDROCHLORIDE

REACTIONS (6)
  - Product quality issue [None]
  - Hyperthyroidism [None]
  - Dry skin [None]
  - Feeling hot [None]
  - Urine output increased [None]
  - Suspected product contamination [None]

NARRATIVE: CASE EVENT DATE: 20221120
